FAERS Safety Report 6310143 (Version 5)
Quarter: 2012Q4

REPORT INFORMATION
  Report Type: 
  Country: US (occurrence: US)
  Receive Date: 20051031
  Receipt Date: 20121210
  Transmission Date: 20130627
  Serious: Yes (Other)
  Sender: FDA-Public Use
  Company Number: US-PFIZER INC-2005144219

PATIENT
  Age: 47 Year
  Sex: Female
  Weight: 74.83 kg

DRUGS (15)
  1. ELLENCE [Suspect]
     Indication: BREAST CANCER
     Dosage: 125 mg, UNK
     Route: 042
     Dates: start: 20050819
  2. ELLENCE [Suspect]
     Dosage: 195 mg, UNK
     Route: 042
     Dates: start: 20050901
  3. ELLENCE [Suspect]
     Dosage: 195 mg, UNK
     Route: 042
     Dates: start: 20050915, end: 2005
  4. ELLENCE [Suspect]
     Dosage: 195 mg, every two weeks
     Dates: start: 200508, end: 2005
  5. FLUOROURACIL [Concomitant]
     Indication: BREAST CANCER
     Dosage: 972 mg, UNK
     Route: 042
     Dates: start: 20050818
  6. FLUOROURACIL [Concomitant]
     Dosage: 974 mg, UNK
     Route: 042
     Dates: start: 20050901
  7. FLUOROURACIL [Concomitant]
     Dosage: 976 mg, UNK
     Route: 042
     Dates: start: 20050915
  8. CYCLOPHOSPHAMIDE [Concomitant]
     Indication: BREAST CANCER
     Dosage: 972 mg, UNK
     Route: 042
     Dates: start: 20050818
  9. CYCLOPHOSPHAMIDE [Concomitant]
     Dosage: 974 mg, UNK
     Route: 042
     Dates: start: 20050901
  10. CYCLOPHOSPHAMIDE [Concomitant]
     Dosage: 976 mg, UNK
     Route: 042
     Dates: start: 20050915
  11. COUMADINE [Concomitant]
  12. ALOXI [Concomitant]
     Route: 042
     Dates: start: 20050818
  13. BENADRYL [Concomitant]
     Route: 042
     Dates: start: 20050818
  14. DECADRON [Concomitant]
     Route: 042
     Dates: start: 20050818
  15. NEULASTA [Concomitant]
     Route: 058

REACTIONS (27)
  - Catheter site related reaction [Recovering/Resolving]
  - Device leakage [Unknown]
  - Extravasation [Unknown]
  - Dysarthria [Recovering/Resolving]
  - Vision blurred [Recovering/Resolving]
  - Device dislocation [Recovered/Resolved]
  - Blister [Recovered/Resolved]
  - Skin injury [Unknown]
  - Muscle injury [Unknown]
  - Skeletal injury [Unknown]
  - Hypertrophic scar [Not Recovered/Not Resolved]
  - Vascular rupture [Not Recovered/Not Resolved]
  - Skin ulcer [Not Recovered/Not Resolved]
  - Skin necrosis [Not Recovered/Not Resolved]
  - Nausea [Not Recovered/Not Resolved]
  - Dizziness [Recovering/Resolving]
  - Swelling [Recovering/Resolving]
  - Skin lesion [Not Recovered/Not Resolved]
  - Erythema [Not Recovered/Not Resolved]
  - Inflammation [Not Recovered/Not Resolved]
  - Contusion [Not Recovered/Not Resolved]
  - Jaundice [Not Recovered/Not Resolved]
  - Skin discolouration [Not Recovered/Not Resolved]
  - Vein discolouration [Not Recovered/Not Resolved]
  - Vasodilatation [Not Recovered/Not Resolved]
  - Nerve injury [Not Recovered/Not Resolved]
  - Bone disorder [Not Recovered/Not Resolved]
